FAERS Safety Report 11460057 (Version 1)
Quarter: 2015Q3

REPORT INFORMATION
  Report Type: Spontaneous
  Country: IT (occurrence: IT)
  Receive Date: 20150904
  Receipt Date: 20150904
  Transmission Date: 20151125
  Serious: Yes (Other)
  Sender: FDA-Public Use
  Company Number: IT-BAYER-2015-410767

PATIENT
  Age: 26 Year
  Sex: Female

DRUGS (13)
  1. HEPARIN [Concomitant]
     Active Substance: HEPARIN SODIUM
  2. MORPHINE [Concomitant]
     Active Substance: MORPHINE
     Dosage: 20 MG, UNK
  3. SEVOFLURANE. [Concomitant]
     Active Substance: SEVOFLURANE
  4. OXYGEN. [Concomitant]
     Active Substance: OXYGEN
  5. ACETYLSALICYLIC ACID({=100 MG) [Suspect]
     Active Substance: ASPIRIN
     Dosage: UNK UNK, QD
     Dates: start: 2004
  6. FENTANYL. [Concomitant]
     Active Substance: FENTANYL
     Dosage: 0.005 ?G, UNK
  7. AMPICILLIN W/SULBACTAM [Concomitant]
     Dosage: 6 G, QD
  8. TRAMADOL. [Concomitant]
     Active Substance: TRAMADOL
     Dosage: 150 MG, UNK
  9. TRIMEBUTINE MALEATE [Concomitant]
     Active Substance: TRIMEBUTINE MALEATE
  10. PENTOTHAL [Concomitant]
     Active Substance: THIOPENTAL SODIUM
     Dosage: 200 MG, UNK
  11. ATRACURIUM [Concomitant]
     Active Substance: ATRACURIUM
     Dosage: 25 MG, UNK
  12. MIDAZOLAM [Concomitant]
     Active Substance: MIDAZOLAM\MIDAZOLAM HYDROCHLORIDE
     Dosage: 5 MG, UNK
  13. GENTAMICIN. [Concomitant]
     Active Substance: GENTAMICIN
     Dosage: 320 MG, QD

REACTIONS (10)
  - Premature labour [None]
  - Diaphragmatic spasm [Recovered/Resolved]
  - Tachycardia paroxysmal [Recovered/Resolved]
  - Maternal exposure during pregnancy [None]
  - Presyncope [None]
  - Central venous catheterisation [None]
  - Ventricular tachycardia [Recovered/Resolved]
  - Uterine contractions during pregnancy [None]
  - Venous occlusion [None]
  - Labelled drug-drug interaction medication error [None]
